FAERS Safety Report 7983520-2 (Version None)
Quarter: 2011Q4

REPORT INFORMATION
  Report Type: 
  Country: None (occurrence: None)
  Receive Date: 20111215
  Receipt Date: 20111213
  Transmission Date: 20120403
  Serious: Yes (Hospitalization)
  Sender: FDA-Public Use
  Company Number: JP-ROCHE-773310

PATIENT
  Sex: Male
  Weight: 172.9 kg

DRUGS (15)
  1. FAMOTIDINE [Concomitant]
     Dates: start: 20101201, end: 20110425
  2. AVASTIN [Suspect]
     Indication: GLIOBLASTOMA
     Dosage: FORM: INFUSION, DOSE: BLINDED, FREQUENCY: D1Q2W
     Route: 042
  3. VALPROATE SODIUM [Suspect]
     Indication: PRODUCT USED FOR UNKNOWN INDICATION
     Route: 065
     Dates: start: 20110124, end: 20110329
  4. DIAZEPAM [Concomitant]
     Dosage: AS PER NEEDED
  5. SODIUM BICARBONATE/SODIUM PHOSPHATE, MONOBASIC [Concomitant]
     Dosage: AS PER NEEDED
     Dates: start: 20110216, end: 20110312
  6. DEXAMETHASONE [Concomitant]
     Dates: start: 20101201, end: 20110206
  7. DIPHENHYDRAMINE HCL [Concomitant]
  8. MAGNESIUM OXIDE [Concomitant]
     Dosage: AS PER NEEDED
     Dates: start: 20110209, end: 20110425
  9. SENNOSIDE [Concomitant]
     Dosage: AS EPR NEEDED
     Dates: start: 20110223, end: 20110425
  10. TEMOZOLOMIDE [Suspect]
     Indication: GLIOBLASTOMA
     Dosage: FREQUENCY: QD
     Route: 048
  11. PREDNISOLONE [Concomitant]
     Dates: start: 20110207, end: 20110425
  12. DOMPERIDONE [Concomitant]
     Dates: start: 20110208, end: 20110325
  13. SULFAMETHOXAZOLE AND TRIMETHOPRIM [Concomitant]
     Dates: start: 20110208, end: 20110325
  14. ZONISAMIDE [Concomitant]
     Dates: start: 20110329, end: 20110404
  15. URSODIOL [Concomitant]

REACTIONS (1)
  - LIVER DISORDER [None]
